FAERS Safety Report 17574278 (Version 1)
Quarter: 2020Q1

REPORT INFORMATION
  Report Type: Report from Study
  Country: NL (occurrence: NL)
  Receive Date: 20200324
  Receipt Date: 20200324
  Transmission Date: 20200409
  Serious: Yes (Other)
  Sender: FDA-Public Use
  Company Number: NL-BIOGEN-2020BI00851225

PATIENT
  Sex: Female

DRUGS (8)
  1. SOLUMDEROL [Concomitant]
     Indication: MULTIPLE SCLEROSIS RELAPSE
     Route: 065
     Dates: start: 20160531, end: 20160602
  2. SOLUMDEROL [Concomitant]
     Route: 065
     Dates: start: 20140703, end: 20140705
  3. TECFIDERA [Suspect]
     Active Substance: DIMETHYL FUMARATE
     Indication: PRODUCT USED FOR UNKNOWN INDICATION
     Route: 065
  4. GILENYA [Suspect]
     Active Substance: FINGOLIMOD HYDROCHLORIDE
     Indication: MULTIPLE SCLEROSIS
     Route: 048
     Dates: start: 20120906, end: 20130712
  5. SOLUMDEROL [Concomitant]
     Route: 065
     Dates: start: 20121025, end: 20121028
  6. HYDROCOBAMINE [Concomitant]
     Active Substance: HYDROXOCOBALAMIN HYDROCHLORIDE
     Indication: VITAMIN B12 DECREASED
     Route: 065
     Dates: start: 20130528
  7. RANITIDINE. [Concomitant]
     Active Substance: RANITIDINE
     Indication: GASTROINTESTINAL DISORDER PROPHYLAXIS
     Route: 065
     Dates: start: 20130528, end: 20130531
  8. DIVISUN [Concomitant]
     Active Substance: CHOLECALCIFEROL
     Indication: VITAMIN D DECREASED
     Route: 065
     Dates: start: 20130528

REACTIONS (15)
  - Pneumonia [Recovered/Resolved]
  - Influenza [Recovered/Resolved]
  - Asthenia [Recovered/Resolved]
  - Pruritus [Unknown]
  - Urinary incontinence [Recovered/Resolved]
  - Disturbance in attention [Recovered/Resolved]
  - Pyrexia [Recovered/Resolved]
  - Trigeminal neuralgia [Recovered/Resolved]
  - Dizziness [Recovered/Resolved]
  - Coordination abnormal [Recovered/Resolved]
  - Insomnia [Not Recovered/Not Resolved]
  - Cough [Recovered/Resolved]
  - Asthenia [Unknown]
  - Ear pain [Recovered/Resolved]
  - Drug hypersensitivity [Recovered/Resolved]

NARRATIVE: CASE EVENT DATE: 20131017
